FAERS Safety Report 8355843-9 (Version None)
Quarter: 2012Q2

REPORT INFORMATION
  Report Type: 
  Country: None (occurrence: None)
  Receive Date: 20120514
  Receipt Date: 20120503
  Transmission Date: 20120825
  Serious: Yes (Hospitalization, Other)
  Sender: FDA-Public Use
  Company Number: FR-BRISTOL-MYERS SQUIBB COMPANY-16573875

PATIENT
  Age: 84 Year
  Sex: Female

DRUGS (12)
  1. COUMADIN [Suspect]
     Indication: ATRIAL FIBRILLATION
     Dosage: 1DF:ONE AND A HALF TABLET DAILY
     Route: 048
  2. BRICANYL [Concomitant]
  3. LASIX [Concomitant]
     Dosage: INCREASED UP TO 60 MG
     Dates: start: 20120321
  4. MORPHINE SULFATE [Concomitant]
     Dates: start: 20120321
  5. DURAGESIC-100 [Concomitant]
     Dosage: 1 DOSAGE = 50 (UNITS NOT SPECIFIED)
  6. RAMIPRIL [Concomitant]
  7. PROPRANOLOL [Concomitant]
  8. VENTOLIN [Concomitant]
  9. SINGULAIR [Concomitant]
  10. PREDNISOLONE [Suspect]
     Indication: BRONCHITIS
     Route: 048
     Dates: start: 20120321, end: 20120324
  11. THEOSTAT [Concomitant]
     Dosage: 1DF:200 UNITS NOS
  12. AUGMENTIN [Concomitant]

REACTIONS (3)
  - ULCER [None]
  - MELAENA [None]
  - GASTRITIS [None]
